FAERS Safety Report 17896866 (Version 1)
Quarter: 2020Q2

REPORT INFORMATION
  Report Type: Spontaneous
  Country: GB (occurrence: GB)
  Receive Date: 20200615
  Receipt Date: 20200615
  Transmission Date: 20200714
  Serious: Yes (Other)
  Sender: FDA-Public Use
  Company Number: GB-009507513-2006GBR004921

PATIENT
  Age: 25 Year
  Sex: Female

DRUGS (1)
  1. NEXPLANON [Suspect]
     Active Substance: ETONOGESTREL
     Indication: CONTRACEPTION
     Dosage: 1 IMPLANT
     Route: 059
     Dates: start: 20170608

REACTIONS (4)
  - Ovarian cyst [Unknown]
  - Hyperthyroidism [Not Recovered/Not Resolved]
  - Incorrect product administration duration [Unknown]
  - Ear infection [Unknown]

NARRATIVE: CASE EVENT DATE: 201812
